FAERS Safety Report 6375762-7 (Version None)
Quarter: 2009Q3

REPORT INFORMATION
  Report Type: 
  Country: None (occurrence: None)
  Receive Date: 20090924
  Receipt Date: 20090915
  Transmission Date: 20100115
  Serious: Yes (Other)
  Sender: FDA-Public Use
  Company Number: BR-PFIZER INC-2009268788

PATIENT
  Age: 44 Year

DRUGS (2)
  1. CELEBRA [Suspect]
     Indication: POSTOPERATIVE CARE
     Dosage: UNK
     Route: 048
     Dates: start: 20090501, end: 20090101
  2. ALPRAZOLAM [Concomitant]
     Indication: DEPRESSION
     Dosage: UNK

REACTIONS (4)
  - ARRHYTHMIA [None]
  - DYSPNOEA [None]
  - HEADACHE [None]
  - HYPERTENSION [None]
